FAERS Safety Report 6052594-0 (Version None)
Quarter: 2009Q1

REPORT INFORMATION
  Report Type: 
  Country: None (occurrence: None)
  Receive Date: 20090127
  Receipt Date: 20090116
  Transmission Date: 20090719
  Serious: Yes (Death)
  Sender: FDA-Public Use
  Company Number: US-RANBAXY-2009RR-20737

PATIENT
  Age: 33 Year
  Sex: Female

DRUGS (4)
  1. ACETAMINOPHEN [Suspect]
  2. DEXTROAMPHETAMINE AND AMPHETAMINE SALTS [Suspect]
  3. METHADONE HCL [Suspect]
  4. ZOLPIDEM TARTRATE [Suspect]

REACTIONS (1)
  - DRUG ABUSE [None]
